FAERS Safety Report 6708653-X (Version None)
Quarter: 2010Q2

REPORT INFORMATION
  Report Type: 
  Country: None (occurrence: None)
  Receive Date: 20100503
  Receipt Date: 20100429
  Transmission Date: 20101027
  Serious: Yes (Death)
  Sender: FDA-Public Use
  Company Number: GB-ROCHE-700576

PATIENT
  Sex: Female
  Weight: 49.9 kg

DRUGS (4)
  1. BEVACIZUMAB [Suspect]
     Dosage: MOST RECENT DOSE PRIOR TO SAE: 22 MARCH 2010 (DOSE: 375 MG)
     Route: 042
     Dates: start: 20100225
  2. CAPECITABINE [Suspect]
     Dosage: LAST DOSE PRIOR TO SAE: 22 MARCH 2010 (DOSE: 1800 MG)
     Route: 048
     Dates: start: 20100225
  3. EPIRUBICIN [Suspect]
     Dosage: MOST RECENT DOSE PRIOR TO SAE ON 22 MARCH 2010: DOSE: 74 MG
     Route: 042
     Dates: start: 20100225
  4. CISPLATIN [Suspect]
     Dosage: MOST RECENT DOSE PRIOR TO SAE ON 22 MARCH 2010 (DOSE 88 MG).
     Route: 042
     Dates: start: 20100325

REACTIONS (3)
  - DEEP VEIN THROMBOSIS [None]
  - PULMONARY EMBOLISM [None]
  - SUDDEN DEATH [None]
